FAERS Safety Report 6863530-9 (Version None)
Quarter: 2010Q3

REPORT INFORMATION
  Report Type: 
  Country: None (occurrence: None)
  Receive Date: 20100720
  Receipt Date: 20100714
  Transmission Date: 20110219
  Serious: Yes (Death)
  Sender: FDA-Public Use
  Company Number: 2010SP035329

PATIENT
  Age: 90 Year
  Sex: Female
  Weight: 50 kg

DRUGS (6)
  1. SUGAMMADEX (SUGAMMADEX /00000000/) [Suspect]
     Indication: PRODUCT USED FOR UNKNOWN INDICATION
     Dosage: 200 MG;
     Dates: start: 20100617
  2. ROCURONIUM BROMIDE [Suspect]
     Indication: INDUCTION OF ANAESTHESIA
     Dosage: 50 MG
     Dates: start: 20100617
  3. CEPHALOSPORIN (CONT.) [Concomitant]
  4. PROPOFOL (CONT.) [Concomitant]
  5. METARAMINOL (CONT.) [Concomitant]
  6. FENTANYL  (CONT.) [Concomitant]

REACTIONS (6)
  - CARDIO-RESPIRATORY ARREST [None]
  - COUGH [None]
  - ENDOTRACHEAL INTUBATION COMPLICATION [None]
  - MALAISE [None]
  - MUSCLE TWITCHING [None]
  - MYOCARDIAL ISCHAEMIA [None]
